FAERS Safety Report 4721614-5 (Version None)
Quarter: 2005Q3

REPORT INFORMATION
  Report Type: 
  Country: None (occurrence: None)
  Receive Date: 20050721
  Receipt Date: 20050103
  Transmission Date: 20060218
  Serious: No
  Sender: FDA-Public Use
  Company Number: US-BRISTOL-MYERS SQUIBB COMPANY-12811733

PATIENT
  Age: 74 Year
  Sex: Female
  Weight: 77 kg

DRUGS (10)
  1. COUMADIN [Suspect]
     Indication: CARDIAC PACEMAKER INSERTION
     Route: 048
     Dates: start: 20000101
  2. ECHINACEA [Suspect]
     Dates: start: 20041231
  3. AIRBORNE [Suspect]
     Dates: start: 20050101
  4. BONE-UP [Concomitant]
  5. FOSAMAX [Concomitant]
  6. HYZAAR [Concomitant]
  7. LANOXIN [Concomitant]
  8. NORVASC [Concomitant]
  9. TOPROL-XL [Concomitant]
  10. VITAMINS [Concomitant]

REACTIONS (1)
  - INTERNATIONAL NORMALISED RATIO ABNORMAL [None]
